FAERS Safety Report 21208208 (Version 2)
Quarter: 2022Q3

REPORT INFORMATION
  Report Type: Spontaneous
  Country: DE (occurrence: DE)
  Receive Date: 20220812
  Receipt Date: 20220825
  Transmission Date: 20221027
  Serious: Yes (Disabling, Other)
  Sender: FDA-Public Use
  Company Number: DE-DCGMA-22199117

PATIENT
  Age: 80 Year
  Sex: Female

DRUGS (6)
  1. REVLIMID [Suspect]
     Active Substance: LENALIDOMIDE
     Indication: Plasma cell myeloma
     Dosage: CHANGING DOSE, 6 CYCLES REVLIMID AND DEXAMETHASONE
     Route: 048
     Dates: start: 20190318, end: 201910
  2. REVLIMID [Suspect]
     Active Substance: LENALIDOMIDE
     Dosage: RE-E XPOSITION  ATTEMPT  WITH  REVLIMID.  DEC-2021 PAU  SE AND  DOSE  REDUCTION  OF LENALIDOMIDE DUE
     Route: 048
     Dates: start: 20211109, end: 202206
  3. REVLIMID [Suspect]
     Active Substance: LENALIDOMIDE
     Dosage: JUN-2021  IDIOPATHIC  ABDUCENS  PARESIS:  PAUSE OF LENALIDOMIDE,  CONTINUATION  OF DARATUMUMAB
     Route: 048
     Dates: start: 202105, end: 202106
  4. REVLIMID [Suspect]
     Active Substance: LENALIDOMIDE
     Route: 065
     Dates: start: 202203
  5. DARATUMUMAB [Suspect]
     Active Substance: DARATUMUMAB
     Indication: Plasma cell myeloma
     Route: 058
     Dates: start: 202105, end: 202206
  6. DEXAMETHASONE [Concomitant]
     Active Substance: DEXAMETHASONE
     Indication: Product used for unknown indication
     Route: 065
     Dates: start: 20210510

REACTIONS (4)
  - VIth nerve paralysis [Not Recovered/Not Resolved]
  - Retinal detachment [Not Recovered/Not Resolved]
  - Choroidal effusion [Not Recovered/Not Resolved]
  - Neutropenia [Unknown]

NARRATIVE: CASE EVENT DATE: 20210609
